FAERS Safety Report 16580467 (Version 1)
Quarter: 2019Q3

REPORT INFORMATION
  Report Type: Spontaneous
  Country: JP (occurrence: JP)
  Receive Date: 20190716
  Receipt Date: 20190716
  Transmission Date: 20191004
  Serious: Yes (Other)
  Sender: FDA-Public Use
  Company Number: PHJP2019JP008408

PATIENT
  Age: 28 Year
  Sex: Male

DRUGS (1)
  1. IMATINIB. [Suspect]
     Active Substance: IMATINIB MESYLATE
     Indication: CHRONIC MYELOID LEUKAEMIA
     Dosage: 800 MG, QD
     Route: 048

REACTIONS (4)
  - Paternal exposure during pregnancy [Unknown]
  - Oligoasthenozoospermia [Unknown]
  - Chronic myeloid leukaemia transformation [Recovered/Resolved]
  - Azoospermia [Unknown]
